FAERS Safety Report 7399254-1 (Version None)
Quarter: 2011Q2

REPORT INFORMATION
  Report Type: 
  Country: None (occurrence: None)
  Receive Date: 20110407
  Receipt Date: 20110328
  Transmission Date: 20111010
  Serious: Yes (Hospitalization)
  Sender: FDA-Public Use
  Company Number: IT-SANOFI-AVENTIS-2011SA018326

PATIENT
  Age: 57 Year
  Sex: Male

DRUGS (6)
  1. PICOTAMIDE [Suspect]
     Dosage: DOSE DOUBLED
     Route: 065
  2. PICOTAMIDE [Suspect]
     Indication: ANTIPLATELET THERAPY
     Route: 065
  3. CLOPIDOGREL BISULFATE [Suspect]
     Indication: ANTIPLATELET THERAPY
     Route: 065
  4. CLOPIDOGREL BISULFATE [Suspect]
     Dosage: DOSE INCREASED (DOUBLED)
     Route: 065
  5. CLOPIDOGREL BISULFATE [Suspect]
     Route: 065
  6. CLOPIDOGREL BISULFATE [Suspect]
     Route: 065

REACTIONS (8)
  - ELECTROCARDIOGRAM ST SEGMENT ELEVATION [None]
  - DEVICE BREAKAGE [None]
  - MYOCARDIAL INFARCTION [None]
  - DRUG INEFFECTIVE [None]
  - STENT MALFUNCTION [None]
  - ANGIOPATHY [None]
  - THROMBOSIS IN DEVICE [None]
  - ARTERIAL INJURY [None]
